FAERS Safety Report 18846056 (Version 5)
Quarter: 2022Q2

REPORT INFORMATION
  Report Type: Spontaneous
  Country: US (occurrence: US)
  Receive Date: 20210204
  Receipt Date: 20220427
  Transmission Date: 20220721
  Serious: No
  Sender: FDA-Public Use
  Company Number: US-PFIZER INC-2021084532

PATIENT
  Age: 57 Year
  Sex: Female
  Weight: 79.38 kg

DRUGS (3)
  1. GABAPENTIN [Suspect]
     Active Substance: GABAPENTIN
     Indication: Pain
     Dosage: 800 MG, DAILY (100 MG TWICE A DAY AND 600 MG AT BEDTIME)
     Route: 048
     Dates: start: 20210118, end: 20210215
  2. GABAPENTIN [Suspect]
     Active Substance: GABAPENTIN
     Indication: Neuralgia
  3. GABAPENTIN [Suspect]
     Active Substance: GABAPENTIN
     Indication: Sensory disturbance

REACTIONS (4)
  - Drug ineffective for unapproved indication [Recovered/Resolved]
  - Off label use [Recovered/Resolved]
  - Lip swelling [Unknown]
  - Pharyngeal swelling [Unknown]
